FAERS Safety Report 6045122-7 (Version None)
Quarter: 2009Q1

REPORT INFORMATION
  Report Type: 
  Country: None (occurrence: None)
  Receive Date: 20090121
  Receipt Date: 20090119
  Transmission Date: 20090719
  Serious: Yes (Other)
  Sender: FDA-Public Use
  Company Number: FR-BIOGENIDEC-2008BI022584

PATIENT
  Sex: Female

DRUGS (3)
  1. AVONEX [Suspect]
     Indication: RELAPSING-REMITTING MULTIPLE SCLEROSIS
     Route: 030
     Dates: start: 20010101, end: 20031001
  2. AVONEX [Suspect]
     Route: 030
     Dates: start: 20031001, end: 20080825
  3. RIVOTRIL [Concomitant]
     Indication: NEURALGIA
     Dates: start: 20010101

REACTIONS (1)
  - HEPATITIS [None]
